FAERS Safety Report 6694423-8 (Version None)
Quarter: 2010Q2

REPORT INFORMATION
  Report Type: 
  Country: None (occurrence: None)
  Receive Date: 20100421
  Receipt Date: 20100412
  Transmission Date: 20101027
  Serious: Yes (Death, Life-Threatening)
  Sender: FDA-Public Use
  Company Number: 523117

PATIENT
  Age: 25 Year
  Sex: Male
  Weight: 43.9 kg

DRUGS (9)
  1. LEVOPHED [Suspect]
     Indication: BLOOD PRESSURE ABNORMAL
     Dosage: SEE IMAGE
     Route: 042
     Dates: start: 20090830, end: 20090901
  2. LEVOPHED [Suspect]
     Indication: BLOOD PRESSURE ABNORMAL
     Dosage: SEE IMAGE
     Route: 042
     Dates: start: 20090830, end: 20090901
  3. LEVOPHED [Suspect]
     Indication: BLOOD PRESSURE ABNORMAL
     Dosage: SEE IMAGE
     Route: 042
     Dates: start: 20090830, end: 20090901
  4. LEVOPHED [Suspect]
     Indication: BLOOD PRESSURE ABNORMAL
     Dosage: SEE IMAGE
     Route: 042
     Dates: start: 20090830, end: 20090901
  5. DOPAMINE HYDROCHLORIDE INJECTION (DOPAMINE HYDROCHLORIDE) [Concomitant]
  6. PHENYLEPHRINE HCL INJ USP 1% (PHENYLEPHRINE) [Concomitant]
  7. (VASOPRESSIN) [Concomitant]
  8. DOBUTAMINE IN 5% DEXTROSE INJ USP (DOBUTAMINE HYDROCHLORIDE) [Concomitant]
  9. 5% DEXTROSE INJ, USP 250ML (DEXTROSE) [Concomitant]

REACTIONS (11)
  - BLOOD PRESSURE DECREASED [None]
  - BLOOD PRESSURE INCREASED [None]
  - CARDIAC ARREST [None]
  - CONVULSION [None]
  - DIALYSIS [None]
  - OVERDOSE [None]
  - PALLOR [None]
  - PERIPHERAL COLDNESS [None]
  - PULSE ABSENT [None]
  - PYREXIA [None]
  - RENAL FAILURE [None]
